FAERS Safety Report 20103007 (Version 1)
Quarter: 2021Q4

REPORT INFORMATION
  Report Type: Spontaneous
  Country: CN (occurrence: CN)
  Receive Date: 20211123
  Receipt Date: 20211123
  Transmission Date: 20220303
  Serious: Yes (Other)
  Sender: FDA-Public Use
  Company Number: CN-NOVARTISPH-NVSC2021CN267830

PATIENT
  Age: 59 Year
  Sex: Male
  Weight: 72 kg

DRUGS (8)
  1. OCTREOTIDE ACETATE [Suspect]
     Active Substance: OCTREOTIDE ACETATE
     Indication: Large intestinal haemorrhage
     Dosage: 0.05 MG, QH (MICROPUMP)
     Route: 042
  2. OCTREOTIDE ACETATE [Suspect]
     Active Substance: OCTREOTIDE ACETATE
     Dosage: 0.025 MG, QH (ON THE DAY OF OPERATION)
     Route: 042
  3. OCTREOTIDE ACETATE [Suspect]
     Active Substance: OCTREOTIDE ACETATE
     Dosage: 0.05 MG, QH (MICROPUMP, TO STOP BLEEDING)
     Route: 042
  4. OCTREOTIDE ACETATE [Suspect]
     Active Substance: OCTREOTIDE ACETATE
     Dosage: 0.1 MG, Q8H
     Route: 058
  5. AMINO ACIDS, SOURCE UNSPECIFIED [Suspect]
     Active Substance: AMINO ACIDS, SOURCE UNSPECIFIED
     Indication: Large intestinal haemorrhage
     Dosage: 250 ML (21.25 G)
     Route: 042
  6. PANTOPRAZOLE [Concomitant]
     Active Substance: PANTOPRAZOLE
     Indication: Large intestinal haemorrhage
     Dosage: UNK
     Route: 042
  7. HAEMAGGLUTININ [Concomitant]
     Indication: Haemostasis
     Dosage: UNK
     Route: 042
  8. HAEMOCOAGULASE [Concomitant]
     Indication: Haemorrhoids
     Dosage: UNK
     Route: 042

REACTIONS (2)
  - Hypoglycaemia [Recovered/Resolved]
  - Product use in unapproved indication [Unknown]
